FAERS Safety Report 20181021 (Version 3)
Quarter: 2022Q2

REPORT INFORMATION
  Report Type: Spontaneous
  Country: US (occurrence: US)
  Receive Date: 20211214
  Receipt Date: 20220624
  Transmission Date: 20220721
  Serious: Yes (Hospitalization, Other)
  Sender: FDA-Public Use
  Company Number: US-PFIZER INC-202101706993

PATIENT
  Age: 81 Year
  Sex: Female

DRUGS (3)
  1. LORBRENA [Suspect]
     Active Substance: LORLATINIB
     Dosage: 25 MG
  2. LORBRENA [Suspect]
     Active Substance: LORLATINIB
     Dosage: 100 MG
     Dates: start: 20220112
  3. LORBRENA [Suspect]
     Active Substance: LORLATINIB
     Dosage: UNK (DOSAGE REDUCED BY 50%)

REACTIONS (8)
  - Transient ischaemic attack [Unknown]
  - Supraventricular tachycardia [Unknown]
  - Neoplasm progression [Unknown]
  - Visual impairment [Unknown]
  - Photopsia [Unknown]
  - Gait inability [Unknown]
  - Quality of life decreased [Unknown]
  - Movement disorder [Unknown]
